FAERS Safety Report 10279656 (Version 1)
Quarter: 2014Q3

REPORT INFORMATION
  Report Type: Report from Study
  Country: CA (occurrence: CA)
  Receive Date: 20140707
  Receipt Date: 20140707
  Transmission Date: 20150326
  Serious: Yes (Other)
  Sender: FDA-Public Use
  Company Number: CA-ASTELLAS-2014US007659

PATIENT

DRUGS (1)
  1. SOLIFENACIN [Suspect]
     Active Substance: SOLIFENACIN
     Indication: HYPERTONIC BLADDER
     Dosage: UNK, UNKNOWN FREQ.
     Route: 065

REACTIONS (2)
  - Aggression [Unknown]
  - Off label use [Unknown]
